FAERS Safety Report 6094400-4 (Version None)
Quarter: 2009Q1

REPORT INFORMATION
  Report Type: 
  Country: None (occurrence: None)
  Receive Date: 20090226
  Receipt Date: 20090224
  Transmission Date: 20090719
  Serious: Yes (Other)
  Sender: FDA-Public Use
  Company Number: HK-PFIZER INC-2008066362

PATIENT

DRUGS (10)
  1. FESOTERODINE [Suspect]
     Dosage: 4 MG, 1X/DAY
     Route: 048
     Dates: start: 20080603, end: 20080804
  2. ALL OTHER THERAPEUTIC PRODUCTS [Concomitant]
     Route: 048
     Dates: start: 20080723, end: 20080730
  3. ALL OTHER THERAPEUTIC PRODUCTS [Concomitant]
     Route: 048
     Dates: start: 20080723, end: 20080730
  4. CEPHALEXIN [Concomitant]
     Route: 048
     Dates: start: 20080723, end: 20080730
  5. PHENAZOPYRIDINE HCL TAB [Concomitant]
     Route: 048
     Dates: start: 20080723, end: 20080730
  6. EMULSIFYING OINTMENT [Concomitant]
     Dates: start: 20080402
  7. AQUEOUS CREAM [Concomitant]
     Dates: start: 20080402
  8. FLUOCINOLONE ACETONIDE [Concomitant]
     Dates: start: 20080402
  9. HYDROXYZINE [Concomitant]
     Route: 048
     Dates: start: 20080402
  10. TRIACT [Concomitant]
     Route: 048
     Dates: start: 20080402

REACTIONS (1)
  - URINARY TRACT INFECTION [None]
